FAERS Safety Report 6846206-3 (Version None)
Quarter: 2010Q3

REPORT INFORMATION
  Report Type: 
  Country: None (occurrence: None)
  Receive Date: 20100715
  Receipt Date: 20070913
  Transmission Date: 20110219
  Serious: Yes (Other)
  Sender: FDA-Public Use
  Company Number: US-PFIZER INC-2007076868

PATIENT
  Sex: Male

DRUGS (1)
  1. CHANTIX [Suspect]

REACTIONS (4)
  - HALLUCINATION [None]
  - MUSCULOSKELETAL DISORDER [None]
  - NERVOUSNESS [None]
  - UNEVALUABLE EVENT [None]
